FAERS Safety Report 20661686 (Version 1)
Quarter: 2022Q2

REPORT INFORMATION
  Report Type: Report from Study
  Country: IE (occurrence: IE)
  Receive Date: 20220401
  Receipt Date: 20220401
  Transmission Date: 20220721
  Serious: Yes (Life-Threatening, Other)
  Sender: FDA-Public Use
  Company Number: IE-SUN PHARMACEUTICAL INDUSTRIES LTD-2022R1-331128

PATIENT

DRUGS (2)
  1. DOXORUBICIN [Suspect]
     Active Substance: DOXORUBICIN
     Indication: Anaplastic thyroid cancer
     Dosage: 15 MILLIGRAM/SQ. METER, WEEKLY FOR 2 WEEKS FOR INITIAL 2 CYCLES
     Route: 065
  2. DOXORUBICIN [Suspect]
     Active Substance: DOXORUBICIN
     Dosage: 15 MG/M2, ONCE WEEKLY X 3 WEEKS FOLLOWED BY 1 WEEK GAP FOR REMAINING 12 CYCLES
     Route: 065

REACTIONS (4)
  - Dysphagia [Unknown]
  - Dermatitis [Unknown]
  - Fatigue [Unknown]
  - Anaemia [Unknown]
